FAERS Safety Report 11604778 (Version 1)
Quarter: 2015Q4

REPORT INFORMATION
  Report Type: Report from Study
  Country: FR (occurrence: FR)
  Receive Date: 20151007
  Receipt Date: 20151007
  Transmission Date: 20160304
  Serious: Yes (Hospitalization)
  Sender: FDA-Public Use
  Company Number: FR-SA-2015SA150009

PATIENT
  Age: 62 Year
  Sex: Male

DRUGS (5)
  1. CAMPATH [Suspect]
     Active Substance: ALEMTUZUMAB
     Indication: LARGE GRANULAR LYMPHOCYTOSIS
     Dosage: 3 INJECTION PER WEEK
     Route: 058
     Dates: start: 20150624, end: 20150819
  2. METFORMIN [Concomitant]
     Active Substance: METFORMIN HYDROCHLORIDE
     Indication: DIABETES MELLITUS
  3. BACTRIM [Concomitant]
     Active Substance: SULFAMETHOXAZOLE\TRIMETHOPRIM
     Indication: ANTIFUNGAL PROPHYLAXIS
     Dates: start: 20150624
  4. INEXIUM [Concomitant]
     Active Substance: ESOMEPRAZOLE
     Indication: PROPHYLAXIS
  5. VALACICLOVIR [Concomitant]
     Active Substance: VALACYCLOVIR HYDROCHLORIDE
     Indication: ANTIVIRAL PROPHYLAXIS
     Dates: start: 20150624

REACTIONS (3)
  - Cellulitis [Recovered/Resolved]
  - Bacillus infection [Recovered/Resolved]
  - Sepsis [Recovered/Resolved]

NARRATIVE: CASE EVENT DATE: 20150827
